FAERS Safety Report 16981599 (Version 2)
Quarter: 2019Q4

REPORT INFORMATION
  Report Type: Spontaneous
  Country: CZ (occurrence: CZ)
  Receive Date: 20191101
  Receipt Date: 20191207
  Transmission Date: 20200122
  Serious: Yes (Other)
  Sender: FDA-Public Use
  Company Number: CZ-ROCHE-2454451

PATIENT
  Sex: Male

DRUGS (3)
  1. ZELBORAF [Suspect]
     Active Substance: VEMURAFENIB
     Indication: METASTATIC MALIGNANT MELANOMA
     Dosage: 4-0-4 TABLETS
     Route: 048
     Dates: start: 201904
  2. ZELBORAF [Suspect]
     Active Substance: VEMURAFENIB
     Dosage: 3-0-3 TABLETS
     Route: 048
     Dates: start: 2019
  3. COTELLIC [Suspect]
     Active Substance: COBIMETINIB
     Indication: METASTATIC MALIGNANT MELANOMA
     Dosage: 3 TABLETS ONCE PER DAY FOR 21 DAYS; NEXT 7 DAYS WITHOUT COTELLIC
     Route: 048
     Dates: start: 201904

REACTIONS (4)
  - Photosensitivity reaction [Unknown]
  - Epistaxis [Recovered/Resolved]
  - Thrombocytopenia [Recovered/Resolved]
  - Folliculitis [Unknown]

NARRATIVE: CASE EVENT DATE: 2019
